FAERS Safety Report 9546587 (Version 1)
Quarter: 2013Q3

REPORT INFORMATION
  Report Type: Spontaneous
  Country: US (occurrence: US)
  Receive Date: 20130924
  Receipt Date: 20130924
  Transmission Date: 20140515
  Serious: No
  Sender: FDA-Public Use
  Company Number: US-B.I. PHARMACEUTICALS,INC./RIDGEFIELD-2013-BI-28844BP

PATIENT
  Age: 89 Year
  Sex: Female
  Weight: 50 kg

DRUGS (5)
  1. COMBIVENT [Suspect]
     Indication: OCCUPATIONAL ASTHMA
     Dosage: DOSE PER APPLICATION: 18 MCG / 103 MCG;
     Route: 055
     Dates: end: 20120319
  2. PROAIR [Concomitant]
     Indication: OCCUPATIONAL ASTHMA
     Route: 055
  3. SOTALOL [Concomitant]
     Indication: ATRIAL FIBRILLATION
     Route: 048
  4. WARFARIN [Concomitant]
     Indication: ATRIAL FIBRILLATION
     Route: 048
  5. OMEPRAZOLE [Concomitant]
     Route: 048

REACTIONS (2)
  - Cough [Not Recovered/Not Resolved]
  - Off label use [Recovered/Resolved]
